FAERS Safety Report 5039256-3 (Version None)
Quarter: 2006Q2

REPORT INFORMATION
  Report Type: 
  Country: None (occurrence: None)
  Receive Date: 20060629
  Receipt Date: 20060620
  Transmission Date: 20061013
  Serious: Yes (Other)
  Sender: FDA-Public Use
  Company Number: US-ROCHE-452710

PATIENT
  Sex: Female

DRUGS (2)
  1. ACCUTANE [Suspect]
     Indication: DRUG USE FOR UNKNOWN INDICATION
     Route: 065
     Dates: start: 19920615, end: 19920615
  2. ACCUTANE [Suspect]
     Route: 065
     Dates: start: 19980615, end: 19980615

REACTIONS (7)
  - ARTHRITIS [None]
  - CARDIOVASCULAR DISORDER [None]
  - DEPRESSION [None]
  - ILL-DEFINED DISORDER [None]
  - IRRITABLE BOWEL SYNDROME [None]
  - REPRODUCTIVE TRACT DISORDER [None]
  - SYSTEMIC LUPUS ERYTHEMATOSUS [None]
